FAERS Safety Report 14259664 (Version 2)
Quarter: 2017Q4

REPORT INFORMATION
  Report Type: Spontaneous
  Country: CH (occurrence: CH)
  Receive Date: 20171207
  Receipt Date: 20171218
  Transmission Date: 20180321
  Serious: Yes (Hospitalization)
  Sender: FDA-Public Use
  Company Number: CH-PFIZER INC-2017523364

PATIENT
  Age: 79 Year
  Sex: Male

DRUGS (7)
  1. TAZOBAC [Suspect]
     Active Substance: PIPERACILLIN SODIUM\TAZOBACTAM SODIUM
     Indication: PYODERMA
     Dosage: 4.5 G, 3X/DAY (EVERY 8 HOURS)
     Route: 041
     Dates: start: 20170320, end: 20170327
  2. BRUFEN [Concomitant]
     Active Substance: IBUPROFEN
     Indication: PERIPHERAL ARTERIAL OCCLUSIVE DISEASE
     Dosage: 400 MG, 1X/DAY
     Route: 048
  3. ASPIRIN CARDIO [Concomitant]
     Active Substance: ASPIRIN
     Indication: PERIPHERAL ARTERIAL OCCLUSIVE DISEASE
     Dosage: 100 MG, 1X/DAY
     Route: 048
  4. ENALAPRIL-MEPHA [Concomitant]
     Active Substance: ENALAPRIL
     Indication: HYPERTENSION
     Dosage: 10 MG, 2X/DAY
     Route: 048
  5. LYRICA [Concomitant]
     Active Substance: PREGABALIN
     Indication: PERIPHERAL ARTERIAL OCCLUSIVE DISEASE
     Dosage: 300 MG, 2X/DAY
     Route: 048
  6. TORASEMID SANDOZ ECO [Concomitant]
     Active Substance: TORSEMIDE
     Indication: HYPERTENSION
     Dosage: 10 MG, 1X/DAY
     Route: 048
  7. DOXIUM [Concomitant]
     Indication: PERIPHERAL ARTERIAL OCCLUSIVE DISEASE
     Dosage: 500 MG, 1X/DAY
     Route: 048

REACTIONS (4)
  - Rash [Recovered/Resolved]
  - Hypersensitivity [Recovered/Resolved]
  - Pruritus [Recovered/Resolved]
  - Xerosis [Recovered/Resolved]

NARRATIVE: CASE EVENT DATE: 20170327
